FAERS Safety Report 5626069-4 (Version None)
Quarter: 2008Q1

REPORT INFORMATION
  Report Type: 
  Country: None (occurrence: None)
  Receive Date: 20080214
  Receipt Date: 20080207
  Transmission Date: 20080703
  Serious: Yes (Hospitalization)
  Sender: FDA-Public Use
  Company Number: US-BRISTOL-MYERS SQUIBB COMPANY-14068761

PATIENT
  Age: 50 Year
  Sex: Female
  Weight: 56 kg

DRUGS (5)
  1. ERBITUX [Suspect]
     Indication: CERVIX CARCINOMA
     Route: 042
     Dates: start: 20080118, end: 20080118
  2. CISPLATIN [Suspect]
     Indication: CERVIX CARCINOMA
     Route: 042
     Dates: start: 20080118, end: 20080118
  3. COUMADIN [Suspect]
  4. KLONOPIN [Suspect]
  5. OXYCODONE HCL [Concomitant]

REACTIONS (10)
  - COUGH [None]
  - HAEMOGLOBIN DECREASED [None]
  - HYPOCALCAEMIA [None]
  - INFECTION [None]
  - PHARYNGOLARYNGEAL PAIN [None]
  - PLATELET COUNT DECREASED [None]
  - PYREXIA [None]
  - RHINORRHOEA [None]
  - URINARY TRACT INFECTION [None]
  - WHITE BLOOD CELL COUNT DECREASED [None]
